FAERS Safety Report 6245789-4 (Version None)
Quarter: 2009Q2

REPORT INFORMATION
  Report Type: 
  Country: None (occurrence: None)
  Receive Date: 20090624
  Receipt Date: 20090612
  Transmission Date: 20091009
  Serious: No
  Sender: FDA-Public Use
  Company Number: 20096904

PATIENT
  Sex: Male

DRUGS (1)
  1. LIORESAL [Suspect]
     Indication: MUSCLE SPASTICITY
     Dosage: MCG, DAILY, INTRATHECAL
     Route: 037

REACTIONS (7)
  - DRUG DELIVERY DEVICE REMOVAL [None]
  - DRUG DELIVERY SYSTEM MALFUNCTION [None]
  - IMPAIRED HEALING [None]
  - IMPLANT SITE INFECTION [None]
  - SUBCUTANEOUS HAEMATOMA [None]
  - WOUND DEHISCENCE [None]
  - WOUND DRAINAGE [None]
